FAERS Safety Report 26083109 (Version 1)
Quarter: 2025Q4

REPORT INFORMATION
  Report Type: Spontaneous
  Country: US (occurrence: None)
  Receive Date: 20251124
  Receipt Date: 20251124
  Transmission Date: 20260117
  Serious: No
  Sender: FDA-CTU
  Company Number: None

PATIENT
  Age: 68 Year
  Sex: Male
  Weight: 64 kg

DRUGS (1)
  1. LECANEMAB-IRMB [Suspect]
     Active Substance: LECANEMAB-IRMB
     Indication: Dementia Alzheimer^s type
     Dosage: 650 MG  IV
     Route: 042
     Dates: start: 20240408, end: 20240520

REACTIONS (3)
  - Headache [None]
  - Magnetic resonance imaging abnormal [None]
  - Vascular malformation [None]

NARRATIVE: CASE EVENT DATE: 20240615
